FAERS Safety Report 14860913 (Version 1)
Quarter: 2018Q2

REPORT INFORMATION
  Report Type: Spontaneous
  Country: DK (occurrence: DK)
  Receive Date: 20180508
  Receipt Date: 20180508
  Transmission Date: 20180711
  Serious: Yes (Life-Threatening)
  Sender: FDA-Public Use
  Company Number: DK-PFIZER INC-2018185466

PATIENT
  Age: 50 Year
  Sex: Male
  Weight: 65 kg

DRUGS (1)
  1. MEDROL [Suspect]
     Active Substance: METHYLPREDNISOLONE
     Indication: ADRENOCORTICAL STEROID THERAPY
     Dosage: 64 MG, 1X/DAY
     Route: 048
     Dates: start: 20171129

REACTIONS (3)
  - Suicidal ideation [Recovered/Resolved]
  - Acute psychosis [Recovered/Resolved with Sequelae]
  - Suicide attempt [Recovered/Resolved]

NARRATIVE: CASE EVENT DATE: 2018
